FAERS Safety Report 13521093 (Version 2)
Quarter: 2018Q1

REPORT INFORMATION
  Report Type: Report from Study
  Country: US (occurrence: US)
  Receive Date: 20170508
  Receipt Date: 20180108
  Transmission Date: 20180508
  Serious: Yes (Life-Threatening, Hospitalization, Other)
  Sender: FDA-Public Use
  Company Number: PHHO2013US017563

PATIENT
  Age: 25 Year
  Sex: Female
  Weight: 74.9 kg

DRUGS (9)
  1. METHOTREXATE. [Suspect]
     Active Substance: METHOTREXATE
     Indication: ACUTE LYMPHOCYTIC LEUKAEMIA
     Dosage: 20 MG/M2, CYCLIC
     Route: 048
     Dates: end: 20131016
  2. CYTARABINE. [Suspect]
     Active Substance: CYTARABINE
     Indication: ACUTE LYMPHOCYTIC LEUKAEMIA
     Dosage: 75 MG/M2, CYCLIC, DAYS 36-39 AND 43-46 (810 MG TOTAL ADMINISTERED DOSE)
     Route: 042
     Dates: end: 20131018
  3. DEXAMETHASONE. [Suspect]
     Active Substance: DEXAMETHASONE
     Indication: ACUTE LYMPHOCYTIC LEUKAEMIA
     Dosage: 5 MG/M2, CYCLIC, (252 MG TOTAL ADMINISTERED DOSE)
     Route: 048
     Dates: end: 20130918
  4. DOXORUBICIN [Suspect]
     Active Substance: DOXORUBICIN
     Indication: ACUTE LYMPHOCYTIC LEUKAEMIA
     Dosage: 25 MG/M2, CYCLIC, OVER 15 MIN, DAYS 1, 8 AND 15 (135 MG TOTAL ADMINISTERED DOSE)
     Route: 042
     Dates: end: 20130913
  5. VINCRISTINE SULPHATE [Suspect]
     Active Substance: VINCRISTINE SULFATE
     Indication: ACUTE LYMPHOCYTIC LEUKAEMIA
     Dosage: 1.5 MG/M2, CYCLIC, OVER 1 MIN, DAYS 1, 8, 15 AND 50 (6 MG TOTAL ADMINISTERED DOSE)
     Route: 042
     Dates: end: 20131022
  6. METHOTREXATE. [Suspect]
     Active Substance: METHOTREXATE
     Dosage: 8 - 15 MG (AGE-BASED DOSING) DAYS 1, 36 AND 43 (45 MG TOTAL ADMINISTERED DOSE)
     Route: 037
  7. PEGASPARGASE [Suspect]
     Active Substance: PEGASPARGASE
     Indication: ACUTE LYMPHOCYTIC LEUKAEMIA
     Dosage: 2500 IU/M2, CYCLIC, DAY 4 (OR 5 OR 6) AND DAY 50 (9025 MG TOTAL ADMINISTERED DOSE)
     Route: 030
     Dates: end: 20131022
  8. NELARABINE [Suspect]
     Active Substance: NELARABINE
     Indication: ACUTE LYMPHOCYTIC LEUKAEMIA
     Dosage: 650 MG/M2, CYCLIC OVER 60 MIN, DAYS 29-33 (5880 MG TOTAL ADMINISTERED DOSE)
     Route: 042
     Dates: end: 20131004
  9. CYCLOPHOSPHAMIDE. [Suspect]
     Active Substance: CYCLOPHOSPHAMIDE
     Indication: ACUTE LYMPHOCYTIC LEUKAEMIA
     Dosage: 1000 MG/M2, CYCLIC, OVER 30 MIN, DAY 36 (1810 MG TOTAL ADMINISTERED DOSE)
     Route: 042
     Dates: end: 20131009

REACTIONS (4)
  - Acute kidney injury [Recovering/Resolving]
  - Sepsis [Recovering/Resolving]
  - Left ventricular dysfunction [Recovering/Resolving]
  - Enterocolitis [Recovering/Resolving]

NARRATIVE: CASE EVENT DATE: 20131023
